FAERS Safety Report 4509917-0 (Version None)
Quarter: 2004Q4

REPORT INFORMATION
  Report Type: 
  Country: None (occurrence: None)
  Receive Date: 20041119
  Receipt Date: 20041101
  Transmission Date: 20050328
  Serious: Yes (Other)
  Sender: FDA-Public Use
  Company Number: USA041182807

PATIENT
  Age: 42 Year
  Sex: Female
  Weight: 109 kg

DRUGS (3)
  1. ZYPREXA [Suspect]
     Indication: SLEEP DISORDER THERAPY
     Dosage: 10 MG/1 DAY
     Dates: start: 20030701, end: 20040701
  2. PROZAC [Suspect]
     Dosage: 40 MG/1 DAY
     Dates: start: 20040701
  3. PRILOSEC (OMEPRAZOLE RATIOPHARM) [Concomitant]

REACTIONS (11)
  - BLINDNESS [None]
  - BLOOD CHOLESTEROL INCREASED [None]
  - BLOOD PRESSURE INCREASED [None]
  - BURNING SENSATION [None]
  - DIABETES MELLITUS [None]
  - HEART RATE INCREASED [None]
  - HYPERSENSITIVITY [None]
  - INSOMNIA [None]
  - RESPIRATORY DISORDER [None]
  - WEIGHT DECREASED [None]
  - WEIGHT INCREASED [None]
